FAERS Safety Report 16417387 (Version 1)
Quarter: 2019Q2

REPORT INFORMATION
  Report Type: Spontaneous
  Country: ES (occurrence: ES)
  Receive Date: 20190611
  Receipt Date: 20190611
  Transmission Date: 20190711
  Serious: Yes (Other)
  Sender: FDA-Public Use
  Company Number: ES-MERZ NORTH AMERICA, INC.-19MRZ-00249

PATIENT
  Age: 61 Year
  Sex: Female

DRUGS (16)
  1. XEOMIN [Suspect]
     Active Substance: INCOBOTULINUMTOXINA
     Indication: MIGRAINE WITHOUT AURA
  2. TOPIRAMATE. [Suspect]
     Active Substance: TOPIRAMATE
     Indication: MIGRAINE WITHOUT AURA
  3. ZONISAMIDE. [Suspect]
     Active Substance: ZONISAMIDE
     Indication: MIGRAINE WITHOUT AURA
  4. FROVATRIPTAN. [Concomitant]
     Active Substance: FROVATRIPTAN
     Route: 048
  5. ELETRIPTAN. [Concomitant]
     Active Substance: ELETRIPTAN
     Route: 048
  6. OMEPRAZOLE. [Concomitant]
     Active Substance: OMEPRAZOLE
     Indication: DYSPEPSIA
  7. IBUPROFEN. [Concomitant]
     Active Substance: IBUPROFEN
     Indication: MIGRAINE
  8. QUETIAPINE. [Suspect]
     Active Substance: QUETIAPINE
     Indication: MIGRAINE WITHOUT AURA
  9. SUMATRIPTAN. [Suspect]
     Active Substance: SUMATRIPTAN
     Indication: MIGRAINE WITHOUT AURA
  10. OLANZAPINE. [Suspect]
     Active Substance: OLANZAPINE
     Indication: MIGRAINE WITHOUT AURA
  11. DEXKETOPROFEN [Concomitant]
     Active Substance: DEXKETOPROFEN
  12. VALPROATE SODIUM. [Concomitant]
     Active Substance: VALPROATE SODIUM
     Indication: MIGRAINE
  13. CANDESARTAN. [Suspect]
     Active Substance: CANDESARTAN
     Indication: MIGRAINE WITHOUT AURA
     Route: 048
  14. LISINOPRIL. [Concomitant]
     Active Substance: LISINOPRIL
  15. VENLAFAXINE [Concomitant]
     Active Substance: VENLAFAXINE HYDROCHLORIDE
  16. NAPROXEN. [Concomitant]
     Active Substance: NAPROXEN
     Route: 048

REACTIONS (7)
  - Off label use [Unknown]
  - Drug ineffective [Unknown]
  - Seizure [Recovering/Resolving]
  - Cognitive disorder [Unknown]
  - Lichen planus [Unknown]
  - Depressive symptom [Unknown]
  - Migraine [Unknown]
